FAERS Safety Report 4449006-7 (Version None)
Quarter: 2004Q3

REPORT INFORMATION
  Report Type: 
  Country: None (occurrence: None)
  Receive Date: 20040910
  Receipt Date: 20040825
  Transmission Date: 20050211
  Serious: Yes (Disabling)
  Sender: FDA-Public Use
  Company Number: DSA_60441_2004

PATIENT
  Age: 72 Year
  Sex: Male

DRUGS (1)
  1. MYSOLINE [Suspect]
     Dosage: DF

REACTIONS (3)
  - COGNITIVE DISORDER [None]
  - DIFFICULTY IN WALKING [None]
  - HEADACHE [None]
